FAERS Safety Report 6441239-3 (Version None)
Quarter: 2009Q4

REPORT INFORMATION
  Report Type: 
  Country: None (occurrence: None)
  Receive Date: 20091112
  Receipt Date: 20091030
  Transmission Date: 20100525
  Serious: Yes (Other)
  Sender: FDA-Public Use
  Company Number: ALL1-2009-03458

PATIENT
  Age: 17 Year
  Sex: Female
  Weight: 49.9 kg

DRUGS (2)
  1. CARBATROL [Suspect]
     Indication: CONVULSION
     Dosage: TWO 300 MG, FOR A TOTAL OF 600 MG. TWICE DAILY, ORAL
     Route: 048
     Dates: start: 20070101
  2. HYDROXYZINE [Suspect]
     Indication: RASH
     Dates: start: 20090101

REACTIONS (4)
  - CONDITION AGGRAVATED [None]
  - CONVULSION [None]
  - POTENTIATING DRUG INTERACTION [None]
  - RASH [None]
